FAERS Safety Report 19087939 (Version 1)
Quarter: 2021Q2

REPORT INFORMATION
  Report Type: Spontaneous
  Country: CA (occurrence: CA)
  Receive Date: 20210402
  Receipt Date: 20210402
  Transmission Date: 20210717
  Serious: Yes (Other)
  Sender: FDA-Public Use
  Company Number: CA-PURDUE-USA-2021-0239856

PATIENT
  Sex: Male

DRUGS (7)
  1. HYDROMORPH CONTIN [Suspect]
     Active Substance: HYDROMORPHONE
     Dosage: 3 MG, TID
     Route: 065
  2. LORAZEPAM. [Concomitant]
     Active Substance: LORAZEPAM
  3. NITROGLYCERIN. [Concomitant]
     Active Substance: NITROGLYCERIN
  4. HYDROMORPH CONTIN [Suspect]
     Active Substance: HYDROMORPHONE
     Dosage: 9 MG, TID
     Route: 065
  5. HYDROMORPH CONTIN [Suspect]
     Active Substance: HYDROMORPHONE
     Dosage: 12 MG, TID
     Route: 065
  6. HYDROMORPH CONTIN [Suspect]
     Active Substance: HYDROMORPHONE
     Dosage: 6 MG, TID
     Route: 065
  7. HYDROMORPH CONTIN [Suspect]
     Active Substance: HYDROMORPHONE
     Indication: PAIN
     Dosage: 9 MG, TID
     Route: 065

REACTIONS (19)
  - Contraindicated product prescribed [Unknown]
  - Vomiting [Unknown]
  - Muscle twitching [Unknown]
  - Respiratory depression [Unknown]
  - Nausea [Unknown]
  - Arthralgia [Unknown]
  - Gait disturbance [Unknown]
  - Sleep apnoea syndrome [Unknown]
  - Neuropathy peripheral [Unknown]
  - Serotonin syndrome [Unknown]
  - Sleep disorder [Unknown]
  - Fall [Unknown]
  - Pain [Unknown]
  - Off label use [Unknown]
  - Hyperaesthesia [Unknown]
  - Pain in extremity [Unknown]
  - Constipation [Unknown]
  - Drug ineffective [Unknown]
  - Balance disorder [Unknown]
